FAERS Safety Report 8402003-9 (Version None)
Quarter: 2012Q2

REPORT INFORMATION
  Report Type: 
  Country: None (occurrence: None)
  Receive Date: 20120601
  Receipt Date: 20120529
  Transmission Date: 20120825
  Serious: Yes (Other)
  Sender: FDA-Public Use
  Company Number: FR-PFIZER INC-2012128488

PATIENT
  Age: 87 Year
  Sex: Female

DRUGS (8)
  1. ALDACTONE [Suspect]
     Indication: OEDEMA PERIPHERAL
     Dosage: 25 MG, 1X/DAY
     Route: 048
     Dates: start: 20120406
  2. HUMALOG [Concomitant]
  3. LASIX [Suspect]
     Indication: OEDEMA PERIPHERAL
     Dosage: 60 MG, 1X/DAY
     Route: 042
     Dates: start: 20120406, end: 20120410
  4. PROPRANOLOL [Concomitant]
  5. PANTOPRAZOLE [Concomitant]
  6. DESLORATADINE [Suspect]
     Indication: SKIN LESION
     Dosage: 1 TABLET IN THE EVENING
     Route: 048
     Dates: start: 20120411, end: 20120411
  7. LEVEMIR [Concomitant]
  8. BUMETANIDE [Suspect]
     Dosage: 1 MG, 1X/DAY
     Route: 048
     Dates: start: 20120410

REACTIONS (1)
  - HEPATIC ENCEPHALOPATHY [None]
